FAERS Safety Report 8904107 (Version 1)
Quarter: 2012Q4

REPORT INFORMATION
  Report Type: 
  Country: SE (occurrence: SE)
  Receive Date: 20121112
  Receipt Date: 20121112
  Transmission Date: 20130627
  Serious: Yes (Hospitalization)
  Sender: FDA-Public Use
  Company Number: SE-PFIZER INC-2012277845

PATIENT
  Age: 67 Year
  Sex: Male
  Weight: 90.8 kg

DRUGS (17)
  1. GENOTROPIN [Suspect]
     Dosage: 0.2 mg, 1x/day,7 injections/week
     Route: 058
     Dates: start: 19981215
  2. LASIX RETARD [Concomitant]
     Indication: EDEMA
     Dosage: UNK
     Dates: start: 19940622
  3. HYDROCORTISONE [Concomitant]
     Indication: ACTH DECREASED
     Dosage: UNK
     Dates: start: 20030625
  4. LAMOTRIGINE [Concomitant]
     Indication: EPILEPSY
     Dosage: UNK
     Dates: start: 20041026
  5. LAMOTRIGINE [Concomitant]
     Indication: CONVULSIONS
  6. LAMOTRIGINE [Concomitant]
     Indication: SEIZURE
  7. ATENOLOL [Concomitant]
     Indication: ESSENTIAL HYPERTENSION
     Dosage: UNK
     Dates: start: 19860101
  8. TESTOSTERONE [Concomitant]
     Indication: LUTEINISING HORMONE DEFICIENCY
     Dosage: UNK
     Dates: start: 19900601
  9. TESTOSTERONE [Concomitant]
     Indication: FOLLICLE-STIMULATING HORMONE DEFICIENCY
  10. TESTOSTERONE [Concomitant]
     Indication: TESTICULAR HYPOGONADISM
  11. LASIX [Concomitant]
     Indication: ESSENTIAL HYPERTENSION
     Dosage: UNK
     Dates: start: 19940801
  12. TENORMIN [Concomitant]
     Indication: ESSENTIAL HYPERTENSION
     Dosage: UNK
     Dates: start: 19960819
  13. LACTULOSE [Concomitant]
     Indication: CONSTIPATION
     Dosage: UNK
     Dates: start: 20020401
  14. ZOLPIDEM [Concomitant]
     Indication: SLEEP DISTURBANCE
     Dosage: UNK
     Dates: start: 20021125
  15. DESMOPRESSIN [Concomitant]
     Indication: ADH DECREASED
     Dosage: UNK
     Dates: start: 19900601
  16. LEVOTHYROXINE [Concomitant]
     Indication: TSH DECREASED
     Dosage: UNK
     Dates: start: 19900601
  17. LEVOTHYROXINE [Concomitant]
     Indication: PRIMARY HYPOTHYROIDISM

REACTIONS (1)
  - Cerebrovascular accident [Unknown]
